FAERS Safety Report 23139913 (Version 2)
Quarter: 2024Q2

REPORT INFORMATION
  Report Type: Spontaneous
  Country: JP (occurrence: JP)
  Receive Date: 20231102
  Receipt Date: 20240530
  Transmission Date: 20240716
  Serious: Yes (Hospitalization)
  Sender: FDA-Public Use
  Company Number: JP-asahikaseip-2023-AER-06767

PATIENT
  Age: 83 Year
  Sex: Female

DRUGS (1)
  1. RECLAST [Suspect]
     Active Substance: ZOLEDRONIC ACID
     Indication: Product used for unknown indication
     Dosage: 5 MG, Q12MO ROUTE OF ADMIN (FREE TEXT): INTRAVENOUS DRIP
     Route: 042
     Dates: start: 20211117

REACTIONS (2)
  - Fall [Unknown]
  - Intracranial haematoma [Unknown]
